FAERS Safety Report 16929901 (Version 1)
Quarter: 2019Q4

REPORT INFORMATION
  Report Type: Spontaneous
  Country: US (occurrence: US)
  Receive Date: 20191017
  Receipt Date: 20191017
  Transmission Date: 20200122
  Serious: No
  Sender: FDA-Public Use
  Company Number: US-GLAXOSMITHKLINE-US2019AMR184924

PATIENT
  Age: 71 Year
  Sex: Male

DRUGS (2)
  1. VOLTAREN [Suspect]
     Active Substance: DICLOFENAC SODIUM
     Dosage: ONCE A DAY IN THE MORNING, QD
  2. VOLTAREN [Suspect]
     Active Substance: DICLOFENAC SODIUM
     Indication: PLANTAR FASCIITIS
     Dosage: UNK

REACTIONS (5)
  - Wrong technique in product usage process [Unknown]
  - Drug effective for unapproved indication [Unknown]
  - Product administered at inappropriate site [Unknown]
  - Product use in unapproved indication [Unknown]
  - Inappropriate schedule of product administration [Unknown]
